FAERS Safety Report 5247414-8 (Version None)
Quarter: 2007Q1

REPORT INFORMATION
  Report Type: 
  Country: None (occurrence: None)
  Receive Date: 20070223
  Receipt Date: 20070223
  Transmission Date: 20070707
  Serious: Yes (Other)
  Sender: FDA-Public Use
  Company Number: None

PATIENT
  Age: 43 Year
  Sex: Male
  Weight: 81.6475 kg

DRUGS (1)
  1. CLINDAMYCIN [Suspect]
     Indication: LOCALISED INFECTION
     Dosage: 300MG EVERY 6 HOURS

REACTIONS (2)
  - BACK PAIN [None]
  - DYSPEPSIA [None]
